FAERS Safety Report 16181103 (Version 1)
Quarter: 2019Q2

REPORT INFORMATION
  Report Type: Report from Study
  Country: US (occurrence: US)
  Receive Date: 20190410
  Receipt Date: 20190410
  Transmission Date: 20190711
  Serious: Yes (Hospitalization, Other)
  Sender: FDA-Public Use
  Company Number: US-ALEXION PHARMACEUTICALS INC.-A201905189

PATIENT
  Age: 83 Year
  Sex: Male

DRUGS (1)
  1. SOLIRIS [Suspect]
     Active Substance: ECULIZUMAB
     Indication: MYASTHENIA GRAVIS
     Dosage: 1200 MG, Q2W
     Route: 042
     Dates: start: 20181126, end: 20190227

REACTIONS (6)
  - Spinal column injury [Not Recovered/Not Resolved]
  - Injury [Not Recovered/Not Resolved]
  - Coronary artery disease [Unknown]
  - Back injury [Not Recovered/Not Resolved]
  - Fall [Unknown]
  - Head injury [Not Recovered/Not Resolved]

NARRATIVE: CASE EVENT DATE: 20190312
